FAERS Safety Report 23712018 (Version 3)
Quarter: 2025Q1

REPORT INFORMATION
  Report Type: Spontaneous
  Country: DE (occurrence: DE)
  Receive Date: 20240405
  Receipt Date: 20250131
  Transmission Date: 20250409
  Serious: No
  Sender: PFIZER
  Company Number: DE-PFIZER INC-PV202400036623

PATIENT

DRUGS (1)
  1. MEDROXYPROGESTERONE ACETATE [Suspect]
     Active Substance: MEDROXYPROGESTERONE ACETATE

REACTIONS (1)
  - Syringe issue [Unknown]
